FAERS Safety Report 8319326-4 (Version None)
Quarter: 2012Q2

REPORT INFORMATION
  Report Type: 
  Country: None (occurrence: None)
  Receive Date: 20120427
  Receipt Date: 20120418
  Transmission Date: 20120825
  Serious: Yes (Hospitalization, Other)
  Sender: FDA-Public Use
  Company Number: FR-VERTEX PHARMACEUTICALS INC.-AE-2011-001127

PATIENT
  Sex: Male
  Weight: 85 kg

DRUGS (6)
  1. PAROXETINE [Concomitant]
     Indication: ANXIETY
  2. PEGINTERFERON ALFA-2A [Concomitant]
     Indication: HEPATITIS C
     Route: 058
     Dates: start: 20110520
  3. TELAPREVIR [Suspect]
     Indication: HEPATITIS C
     Route: 048
     Dates: start: 20110520, end: 20110812
  4. RIBAVIRIN [Concomitant]
     Indication: HEPATITIS C
     Route: 048
     Dates: start: 20110520
  5. NEORECORMON [Concomitant]
     Indication: ANAEMIA
     Dates: start: 20110620
  6. PROPRANOLOL [Concomitant]
     Indication: PORTAL HYPERTENSION
     Dates: start: 20100101

REACTIONS (3)
  - ANAEMIA [None]
  - PSYCHIATRIC DECOMPENSATION [None]
  - THROMBOCYTOPENIA [None]
